FAERS Safety Report 9328566 (Version 1)
Quarter: 2013Q2

REPORT INFORMATION
  Report Type: Spontaneous
  Country: US (occurrence: US)
  Receive Date: 20130604
  Receipt Date: 20130604
  Transmission Date: 20140414
  Serious: Yes (Other)
  Sender: FDA-Public Use
  Company Number: US-SANOFI-AVENTIS-2012SA051067

PATIENT
  Age: 52 Year
  Sex: Male

DRUGS (5)
  1. LANTUS [Suspect]
     Indication: DIABETES MELLITUS
     Dosage: TOOK 42-45 UNITS AT NIGHT. IN 2011 TOOK IT WITH PUMP.
     Route: 058
     Dates: end: 20120716
  2. LANTUS [Suspect]
     Indication: DIABETES MELLITUS
     Dosage: DOSE:31 UNIT(S)
     Route: 058
     Dates: start: 20120717
  3. LANTUS [Suspect]
     Indication: DIABETES MELLITUS
     Dosage: TOOK 42-45 UNITS AT NIGHT. IN 2011 TOOK IT WITH PUMP.
     Route: 058
     Dates: end: 20120716
  4. HMG COA REDUCTASE INHIBITORS [Concomitant]
     Dates: end: 2012
  5. HMG COA REDUCTASE INHIBITORS [Concomitant]
     Dates: start: 201206

REACTIONS (3)
  - Hypoglycaemic unconsciousness [Unknown]
  - Hypoglycaemia [Unknown]
  - Blood glucose decreased [Unknown]
